FAERS Safety Report 19399406 (Version 2)
Quarter: 2021Q2

REPORT INFORMATION
  Report Type: Spontaneous
  Country: JP (occurrence: JP)
  Receive Date: 20210610
  Receipt Date: 20210622
  Transmission Date: 20210717
  Serious: Yes (Death)
  Sender: FDA-Public Use
  Company Number: JP-ABBVIE-21K-087-3943781-00

PATIENT
  Age: 63 Year
  Sex: Male

DRUGS (2)
  1. DUODOPA [Suspect]
     Active Substance: CARBIDOPA\LEVODOPA
     Indication: PARKINSON^S DISEASE
     Dosage: STRENGTH (CMP): 20 MG/ML 5 MG/ML
     Route: 050
     Dates: start: 20190521
  2. DUODOPA [Suspect]
     Active Substance: CARBIDOPA\LEVODOPA

REACTIONS (1)
  - Pneumonia [Fatal]
